FAERS Safety Report 24850153 (Version 1)
Quarter: 2025Q1

REPORT INFORMATION
  Report Type: Report from Study
  Country: CA (occurrence: CA)
  Receive Date: 20250116
  Receipt Date: 20250116
  Transmission Date: 20250409
  Serious: Yes (Death, Other)
  Sender: IPSEN BIOPHARMACEUTICALS, INC.
  Company Number: CA-IPSEN Group, Research and Development-2025-01080

PATIENT
  Age: 55 Year
  Sex: Female

DRUGS (4)
  1. LANREOTIDE ACETATE [Suspect]
     Active Substance: LANREOTIDE ACETATE
     Indication: Carcinoid syndrome
     Dosage: DEEP SC
     Route: 058
     Dates: start: 20241219
  2. SERTRALINE [Concomitant]
     Active Substance: SERTRALINE HYDROCHLORIDE
  3. VITAMIN D NOS [Concomitant]
     Active Substance: CHOLECALCIFEROL\ERGOCALCIFEROL
     Dosage: 1X/WEEK
  4. IRON [Concomitant]
     Active Substance: IRON
     Dosage: 1X/WEEK

REACTIONS (1)
  - Death [Fatal]

NARRATIVE: CASE EVENT DATE: 20250108
